FAERS Safety Report 6686967-X (Version None)
Quarter: 2010Q2

REPORT INFORMATION
  Report Type: 
  Country: None (occurrence: None)
  Receive Date: 20100419
  Receipt Date: 20100413
  Transmission Date: 20101027
  Serious: Yes (Death, Hospitalization, Disabling)
  Sender: FDA-Public Use
  Company Number: PHHO2004GB14188

PATIENT
  Sex: Female
  Weight: 70 kg

DRUGS (14)
  1. ZOLEDRONATE T29581+SOLINJ+BM [Suspect]
     Indication: METASTASES TO BONE
     Dosage: 4 MG, UNK
     Route: 042
     Dates: start: 20040504, end: 20040818
  2. CHEMOTHERAPEUTICS,OTHER [Suspect]
     Indication: METASTASES TO BONE
  3. DEXAMETHASONE [Suspect]
     Dosage: 6 MG, BID
     Dates: start: 20041005, end: 20041019
  4. DEXAMETHASONE [Suspect]
     Dosage: 4 MG, BID
     Dates: start: 20041019, end: 20041028
  5. DEXAMETHASONE [Suspect]
     Dosage: 2 MG, BID
     Dates: start: 20041028, end: 20041214
  6. DEXAMETHASONE [Suspect]
     Dosage: 2 MG, QD
     Dates: start: 20041214, end: 20050126
  7. PACLITAXEL [Concomitant]
  8. GEMCITABINE HCL [Concomitant]
  9. EPIRUBICIN [Concomitant]
  10. CYCLOPHOSPHAMIDE [Concomitant]
  11. TAXOL [Concomitant]
  12. TAMOXIFEN CITRATE [Concomitant]
  13. RADIOTHERAPY [Concomitant]
  14. VIOXX [Concomitant]

REACTIONS (9)
  - CHRONIC OBSTRUCTIVE PULMONARY DISEASE [None]
  - CONCOMITANT DISEASE PROGRESSION [None]
  - DYSPHONIA [None]
  - DYSPNOEA [None]
  - JOINT SWELLING [None]
  - LUNG INFILTRATION [None]
  - PNEUMOCYSTIS JIROVECI PNEUMONIA [None]
  - PULMONARY EMBOLISM [None]
  - PULMONARY TOXICITY [None]
